FAERS Safety Report 11539816 (Version 2)
Quarter: 2015Q4

REPORT INFORMATION
  Report Type: Report from Study
  Country: US (occurrence: US)
  Receive Date: 20150923
  Receipt Date: 20151015
  Transmission Date: 20160304
  Serious: No
  Sender: FDA-Public Use
  Company Number: US-ASTELLAS-2015US033877

PATIENT
  Sex: Female

DRUGS (3)
  1. PROBIOTIC                          /06395501/ [Concomitant]
     Active Substance: BIFIDOBACTERIUM ANIMALIS SUBSP. LACTIS
     Indication: DERMATITIS ATOPIC
     Dosage: UNK UNK, UNKNOWN FREQ.
     Route: 065
  2. BEESWAX [Concomitant]
     Active Substance: YELLOW WAX
     Indication: DERMATITIS ATOPIC
     Dosage: UNK UNK, UNKNOWN FREQ.
     Route: 065
  3. TACROLIMUS. [Suspect]
     Active Substance: TACROLIMUS
     Indication: DERMATITIS ATOPIC
     Dosage: 0.1 %, UNKNOWN FREQ.
     Route: 061
     Dates: start: 200501

REACTIONS (5)
  - Multiple chemical sensitivity [Unknown]
  - Off label use [Unknown]
  - Application site erythema [Unknown]
  - Dermatitis atopic [Unknown]
  - Application site pain [Unknown]
